FAERS Safety Report 12426258 (Version 3)
Quarter: 2018Q4

REPORT INFORMATION
  Report Type: Spontaneous
  Country: JP (occurrence: JP)
  Receive Date: 20160601
  Receipt Date: 20181027
  Transmission Date: 20190204
  Serious: Yes (Other)
  Sender: FDA-Public Use
  Company Number: JP-ROCHE-1767752

PATIENT
  Age: 7 Year
  Sex: Male
  Weight: 15.7 kg

DRUGS (8)
  1. TAMIFLU [Suspect]
     Active Substance: OSELTAMIVIR PHOSPHATE
     Indication: ANTIVIRAL PROPHYLAXIS
     Route: 048
     Dates: start: 20160215, end: 20160223
  2. MAGNESIUM OXIDE. [Concomitant]
     Active Substance: MAGNESIUM OXIDE
     Indication: CONSTIPATION
     Route: 048
  3. SELENICA-R [Concomitant]
     Active Substance: VALPROATE SODIUM
     Indication: EPILEPSY
     Route: 048
  4. ALEVIATIN [Suspect]
     Active Substance: PHENYTOIN SODIUM
     Indication: EPILEPSY
     Dosage: DOSAGE IS UNCERTAIN.
     Route: 048
     Dates: end: 20160303
  5. ALEVIATIN [Suspect]
     Active Substance: PHENYTOIN SODIUM
     Dosage: DOSAGE IS UNCERTAIN.
     Route: 048
     Dates: start: 20160303, end: 20160310
  6. INCREMIN (JAPAN) [Concomitant]
     Indication: IRON DEFICIENCY ANAEMIA
     Route: 048
  7. DIAZEPAM. [Concomitant]
     Active Substance: DIAZEPAM
     Route: 065
  8. ALEVIATIN [Suspect]
     Active Substance: PHENYTOIN SODIUM
     Dosage: DOSAGE IS UNCERTAIN.
     Route: 048
     Dates: start: 20160311

REACTIONS (6)
  - Decreased appetite [Recovering/Resolving]
  - Dizziness [Unknown]
  - Vomiting [Recovered/Resolved]
  - Drug level increased [Recovering/Resolving]
  - Malaise [Unknown]
  - Somnolence [Recovered/Resolved]

NARRATIVE: CASE EVENT DATE: 20160217
